FAERS Safety Report 9082818 (Version 1)
Quarter: 2013Q1

REPORT INFORMATION
  Report Type: Spontaneous
  Country: US (occurrence: US)
  Receive Date: 20130130
  Receipt Date: 20130130
  Transmission Date: 20140127
  Serious: No
  Sender: FDA-Public Use
  Company Number: US-ABBOTT-12P-163-0981651-00

PATIENT
  Age: 73 Year
  Sex: Male

DRUGS (1)
  1. HUMIRA [Suspect]
     Indication: RHEUMATOID ARTHRITIS
     Dates: start: 2012

REACTIONS (7)
  - Device malfunction [Unknown]
  - Incorrect dose administered [Unknown]
  - Skin injury [Unknown]
  - Injection site bruising [Unknown]
  - Injection site pain [Unknown]
  - Injection site pain [Unknown]
  - Injection site haemorrhage [Unknown]
